FAERS Safety Report 5485993-6 (Version None)
Quarter: 2007Q4

REPORT INFORMATION
  Report Type: 
  Country: None (occurrence: None)
  Receive Date: 20071012
  Receipt Date: 20071001
  Transmission Date: 20080405
  Serious: Yes (Life-Threatening)
  Sender: FDA-Public Use
  Company Number: 17603

PATIENT
  Age: 79 Year
  Sex: Female

DRUGS (4)
  1. PACLITAXEL [Suspect]
     Indication: OVARIAN CANCER
     Dosage: 100 MG
     Dates: start: 20070914, end: 20070914
  2. PACLITAXEL [Suspect]
     Indication: PERITONEAL CARCINOMA
     Dosage: 100 MG
     Dates: start: 20070914, end: 20070914
  3. PACLITAXEL [Suspect]
     Indication: OVARIAN CANCER
     Dosage: 100 MG
     Dates: start: 20070916, end: 20070916
  4. PACLITAXEL [Suspect]
     Indication: PERITONEAL CARCINOMA
     Dosage: 100 MG
     Dates: start: 20070916, end: 20070916

REACTIONS (1)
  - TRANSIENT ISCHAEMIC ATTACK [None]
